FAERS Safety Report 5023657-3 (Version None)
Quarter: 2006Q2

REPORT INFORMATION
  Report Type: 
  Country: None (occurrence: None)
  Receive Date: 20060428
  Receipt Date: 20060303
  Transmission Date: 20061013
  Serious: No
  Sender: FDA-Public Use
  Company Number: WAES 0603USA00873

PATIENT
  Sex: Female

DRUGS (6)
  1. EMEND [Suspect]
     Indication: PROPHYLAXIS OF NAUSEA AND VOMITING
     Dosage: SEE IMAGE
     Route: 048
  2. ADRIAMYCIN PFS [Concomitant]
  3. COMPAZINE [Concomitant]
  4. [THERAPY UNSPECIFIED] [Concomitant]
  5. CYCLOPHOSPHAMIDE [Concomitant]
  6. DEXAMETHASONE TAB [Concomitant]

REACTIONS (3)
  - DEPRESSED LEVEL OF CONSCIOUSNESS [None]
  - FEELING ABNORMAL [None]
  - HEADACHE [None]
